FAERS Safety Report 21987752 (Version 3)
Quarter: 2023Q2

REPORT INFORMATION
  Report Type: Spontaneous
  Country: US (occurrence: US)
  Receive Date: 20230214
  Receipt Date: 20230505
  Transmission Date: 20230721
  Serious: Yes (Other)
  Sender: FDA-Public Use
  Company Number: US-BRISTOL-MYERS SQUIBB COMPANY-2023-021219

PATIENT
  Age: 62 Year
  Sex: Female
  Weight: 52.25 kg

DRUGS (2)
  1. REVLIMID [Suspect]
     Active Substance: LENALIDOMIDE
     Indication: B-cell lymphoma
     Dosage: FREQ -DAILY X 21 DAYS ON AND 7 DAYS OF
     Route: 048
     Dates: start: 20230127
  2. REVLIMID [Suspect]
     Active Substance: LENALIDOMIDE
     Indication: Malignant lymphoid neoplasm

REACTIONS (5)
  - Neck pain [Not Recovered/Not Resolved]
  - Arthralgia [Not Recovered/Not Resolved]
  - Blood pressure increased [Unknown]
  - Angina pectoris [Unknown]
  - Oropharyngeal pain [Not Recovered/Not Resolved]
